FAERS Safety Report 18288604 (Version 1)
Quarter: 2020Q3

REPORT INFORMATION
  Report Type: Spontaneous
  Country: US (occurrence: US)
  Receive Date: 20200919
  Receipt Date: 20200919
  Transmission Date: 20201103
  Serious: No
  Sender: FDA-Public Use
  Company Number: None

PATIENT
  Age: 65 Year
  Sex: Female
  Weight: 81.45 kg

DRUGS (15)
  1. VERAPAMIL [Concomitant]
     Active Substance: VERAPAMIL HYDROCHLORIDE
  2. COENZYME Q10 [Concomitant]
     Active Substance: DIETARY SUPPLEMENT\UBIDECARENONE
  3. RISEDRONATE SODIUM. [Suspect]
     Active Substance: RISEDRONATE SODIUM
     Indication: OSTEOPENIA
     Dosage: ?          QUANTITY:1 TABLET(S);OTHER FREQUENCY:MONTHLY;?
     Route: 048
  4. VITAMIN C [Concomitant]
     Active Substance: ASCORBIC ACID
  5. CRANBERRY. [Concomitant]
     Active Substance: CRANBERRY
  6. CALCIUM + D [Concomitant]
     Active Substance: CALCIUM\VITAMIN D
  7. PROBIOTIC [Concomitant]
     Active Substance: PROBIOTICS NOS
  8. METFORMIN 500 ER [Concomitant]
     Active Substance: METFORMIN HYDROCHLORIDE
  9. VITAMIN D [Concomitant]
     Active Substance: VITAMIN D NOS
  10. PAROXETINE. [Concomitant]
     Active Substance: PAROXETINE
  11. ADULT MULTIVITAMIN [Concomitant]
  12. ZINC. [Concomitant]
     Active Substance: ZINC
  13. ATORVASTATIN [Concomitant]
     Active Substance: ATORVASTATIN
  14. EPIPEN [Concomitant]
     Active Substance: EPINEPHRINE
  15. CITRUCEL [Concomitant]
     Active Substance: METHYLCELLULOSE (4000 MPA.S)

REACTIONS (6)
  - Vomiting [None]
  - Pain [None]
  - Musculoskeletal stiffness [None]
  - Nausea [None]
  - Influenza like illness [None]
  - Fatigue [None]

NARRATIVE: CASE EVENT DATE: 20200829
